FAERS Safety Report 7076776-4 (Version None)
Quarter: 2010Q4

REPORT INFORMATION
  Report Type: 
  Country: None (occurrence: None)
  Receive Date: 20101101
  Receipt Date: 20101021
  Transmission Date: 20110411
  Serious: Yes (Other)
  Sender: FDA-Public Use
  Company Number: CA-JNJFOC-20100501323

PATIENT
  Sex: Male
  Weight: 60.33 kg

DRUGS (6)
  1. REMICADE [Suspect]
     Indication: PRODUCT USED FOR UNKNOWN INDICATION
     Dosage: 1ST INDUCTION DOSE
     Route: 042
  2. POTASSIUM CITRATE [Concomitant]
  3. VITAMIN B-12 [Concomitant]
     Route: 030
  4. FERROUS SULFATE [Concomitant]
  5. FOLIC ACID [Concomitant]
  6. METHOTREXATE [Concomitant]
     Dosage: 2 DOSES BEFORE INFLIXIMAB THERAPY
     Route: 048

REACTIONS (7)
  - ANXIETY [None]
  - APPETITE DISORDER [None]
  - ARTHRALGIA [None]
  - FORMICATION [None]
  - HYPOAESTHESIA [None]
  - SENSORY DISTURBANCE [None]
  - SLEEP DISORDER [None]
